FAERS Safety Report 4404565-5 (Version None)
Quarter: 2004Q3

REPORT INFORMATION
  Report Type: 
  Country: None (occurrence: None)
  Receive Date: 20040720
  Receipt Date: 20040705
  Transmission Date: 20050211
  Serious: Yes (Other)
  Sender: FDA-Public Use
  Company Number: BE-JNJFOC-20040700894

PATIENT
  Age: 64 Year
  Sex: Female
  Weight: 77 kg

DRUGS (7)
  1. SPORANOX [Suspect]
     Indication: FUNGAL INFECTION
     Dosage: 100 MG, 2 IN 1 DAY, ORAL
     Route: 048
     Dates: start: 20040528, end: 20040611
  2. CYTOMEL [Concomitant]
  3. FENOFIBRATE [Concomitant]
  4. ESTRADIOL [Concomitant]
  5. BENEFLORE (FLUDARABINE PHOSPHATE) [Concomitant]
  6. CALCIUM (CALCIUM) [Concomitant]
  7. NASONEX [Concomitant]

REACTIONS (7)
  - ABDOMINAL DISTENSION [None]
  - ARRHYTHMIA [None]
  - CARDIAC FAILURE [None]
  - PULMONARY CONGESTION [None]
  - THYROXINE DECREASED [None]
  - TRI-IODOTHYRONINE INCREASED [None]
  - WEIGHT INCREASED [None]
